FAERS Safety Report 4804346-4 (Version None)
Quarter: 2005Q4

REPORT INFORMATION
  Report Type: 
  Country: None (occurrence: None)
  Receive Date: 20051014
  Receipt Date: 20050928
  Transmission Date: 20060501
  Serious: Yes (Disabling, Other)
  Sender: FDA-Public Use
  Company Number: 2005-02034

PATIENT
  Age: 69 Year
  Sex: Male

DRUGS (3)
  1. VELCADE [Suspect]
  2. LIPITOR [Suspect]
  3. SYNTHROID [Concomitant]

REACTIONS (2)
  - DRUG INTERACTION [None]
  - MYOSITIS [None]
